FAERS Safety Report 10717720 (Version 1)
Quarter: 2015Q1

REPORT INFORMATION
  Report Type: Spontaneous
  Country: DE (occurrence: DE)
  Receive Date: 20150116
  Receipt Date: 20150116
  Transmission Date: 20150721
  Serious: Yes (Hospitalization)
  Sender: FDA-Public Use
  Company Number: DE-BRISTOL-MYERS SQUIBB COMPANY-21630314

PATIENT
  Age: 75 Year
  Sex: Female

DRUGS (6)
  1. QUETIAPINE [Concomitant]
     Active Substance: QUETIAPINE
     Dosage: UNK
  2. DOMINAL                            /00002701/ [Concomitant]
     Indication: SLEEP DISORDER
  3. PERAZIN                            /00113603/ [Concomitant]
  4. ABILIFY [Suspect]
     Active Substance: ARIPIPRAZOLE
     Indication: SCHIZOAFFECTIVE DISORDER
     Dosage: 5 MG, QD
     Route: 065
     Dates: start: 20141112
  5. SEROQUEL [Concomitant]
     Active Substance: QUETIAPINE FUMARATE
  6. CHLORPROTHIXENE [Concomitant]
     Active Substance: CHLORPROTHIXENE
     Indication: RESTLESSNESS

REACTIONS (3)
  - Sinus tachycardia [Recovered/Resolved]
  - Vertigo [Unknown]
  - Restlessness [Unknown]

NARRATIVE: CASE EVENT DATE: 20141112
